FAERS Safety Report 13855576 (Version 3)
Quarter: 2019Q2

REPORT INFORMATION
  Report Type: Spontaneous
  Country: US (occurrence: US)
  Receive Date: 20170810
  Receipt Date: 20190628
  Transmission Date: 20190711
  Serious: No
  Sender: FDA-Public Use
  Company Number: US-VIFOR (INTERNATIONAL) INC.-VIT-2017-04870

PATIENT
  Sex: Female
  Weight: 79.9 kg

DRUGS (14)
  1. VELTASSA [Suspect]
     Active Substance: PATIROMER
  2. PROCRIT [Concomitant]
     Active Substance: ERYTHROPOIETIN
     Indication: ANAEMIA
  3. LABETALOL HYDROCHLORIDE. [Concomitant]
     Active Substance: LABETALOL HYDROCHLORIDE
  4. XALATAN [Concomitant]
     Active Substance: LATANOPROST
  5. VELTASSA [Suspect]
     Active Substance: PATIROMER
     Route: 048
     Dates: start: 2017
  6. ZANTAC [Concomitant]
     Active Substance: RANITIDINE HYDROCHLORIDE
  7. LASIX [Concomitant]
     Active Substance: FUROSEMIDE
  8. CARDURA [Concomitant]
     Active Substance: DOXAZOSIN MESYLATE
  9. VELTASSA [Suspect]
     Active Substance: PATIROMER
     Indication: HYPERKALAEMIA
     Dosage: FOR 3 DAYS
     Route: 048
     Dates: start: 20160323
  10. LEXAPRO [Concomitant]
     Active Substance: ESCITALOPRAM OXALATE
  11. LANTUS SOLOSTAR [Concomitant]
     Active Substance: INSULIN GLARGINE
  12. ASPIRIN. [Concomitant]
     Active Substance: ASPIRIN
  13. VITAMIN D3 [Concomitant]
     Active Substance: CHOLECALCIFEROL
  14. SYNTHROID [Concomitant]
     Active Substance: LEVOTHYROXINE SODIUM

REACTIONS (6)
  - Product dose omission [Unknown]
  - Joint injury [Unknown]
  - Diarrhoea [Recovering/Resolving]
  - Blood potassium increased [Unknown]
  - Inappropriate schedule of product administration [Unknown]
  - Fall [Unknown]

NARRATIVE: CASE EVENT DATE: 2017
